FAERS Safety Report 11294240 (Version 1)
Quarter: 2015Q3

REPORT INFORMATION
  Report Type: Spontaneous
  Country: US (occurrence: US)
  Receive Date: 20150722
  Receipt Date: 20150722
  Transmission Date: 20151125
  Serious: No
  Sender: FDA-Public Use
  Company Number: US-ELI_LILLY_AND_COMPANY-US200803001973

PATIENT
  Sex: Female

DRUGS (5)
  1. OSCAL [Concomitant]
     Active Substance: CALCIUM CARBONATE
  2. MVI [Concomitant]
     Active Substance: VITAMINS
     Dosage: UNK, DAILY (1/D)
  3. ANTIHYPERTENSIVE AGENT [Concomitant]
  4. EVISTA [Suspect]
     Active Substance: RALOXIFENE HYDROCHLORIDE
     Indication: OSTEOPOROSIS
     Dosage: 60 MG, DAILY (1/D)
  5. AMICAR [Concomitant]
     Active Substance: AMINOCAPROIC ACID
     Indication: BLOOD TRIGLYCERIDES INCREASED

REACTIONS (1)
  - Blood triglycerides increased [Not Recovered/Not Resolved]
